FAERS Safety Report 18438411 (Version 2)
Quarter: 2021Q1

REPORT INFORMATION
  Report Type: Other
  Country: IT (occurrence: IT)
  Receive Date: 20201029
  Receipt Date: 20210105
  Transmission Date: 20210419
  Serious: Yes (Other)
  Sender: FDA-Public Use
  Company Number: IT-ROCHE-2700385

PATIENT
  Age: 42 Year
  Sex: Female

DRUGS (2)
  1. OCRELIZUMAB. [Suspect]
     Active Substance: OCRELIZUMAB
     Indication: MULTIPLE SCLEROSIS
     Route: 042
     Dates: start: 20190709
  2. NATALIZUMAB [Concomitant]
     Active Substance: NATALIZUMAB
     Dates: start: 201907, end: 202010

REACTIONS (7)
  - Myalgia [Recovering/Resolving]
  - Ageusia [Recovering/Resolving]
  - COVID-19 pneumonia [Recovering/Resolving]
  - Asthenia [Recovering/Resolving]
  - Pyrexia [Recovering/Resolving]
  - Anosmia [Recovering/Resolving]
  - Dyspnoea [Recovering/Resolving]

NARRATIVE: CASE EVENT DATE: 20200310
